FAERS Safety Report 9733036 (Version 2)
Quarter: 2013Q4

REPORT INFORMATION
  Report Type: Spontaneous
  Country: US (occurrence: None)
  Receive Date: 20131203
  Receipt Date: 20131223
  Transmission Date: 20140711
  Serious: Yes (Hospitalization)
  Sender: FDA-Public Use
  Company Number: US-013737

PATIENT
  Age: 50 Year
  Sex: Female
  Weight: 160 kg

DRUGS (1)
  1. PREPOPIK [Suspect]
     Indication: BOWEL PREPARATION
     Dosage: 1ST DOSE AT 2 PM; 2ND DOSE AT 8 PM; SPLIT DOSE METHOD ORAL
     Route: 048
     Dates: start: 20131113, end: 20131113

REACTIONS (6)
  - Grand mal convulsion [None]
  - Hyponatraemia [None]
  - Electrolyte imbalance [None]
  - Postictal state [None]
  - Disorientation [None]
  - Aggression [None]
